FAERS Safety Report 7019561-1 (Version None)
Quarter: 2010Q3

REPORT INFORMATION
  Report Type: 
  Country: None (occurrence: None)
  Receive Date: 20100928
  Receipt Date: 20100928
  Transmission Date: 20110219
  Serious: No
  Sender: FDA-Public Use
  Company Number: None

PATIENT
  Age: 37 Year
  Sex: Female
  Weight: 92.98 kg

DRUGS (1)
  1. LIDOCAINE AND EPINEPHRINE [Suspect]
     Indication: MOLE EXCISION
     Dosage: 4ML ONCE CUTANEOUS
     Route: 003
     Dates: start: 20100917, end: 20100917

REACTIONS (1)
  - DRUG INEFFECTIVE [None]
